FAERS Safety Report 6534304-3 (Version None)
Quarter: 2010Q1

REPORT INFORMATION
  Report Type: 
  Country: None (occurrence: None)
  Receive Date: 20100112
  Receipt Date: 20091207
  Transmission Date: 20100710
  Serious: No
  Sender: FDA-Public Use
  Company Number: US-BAYER-200942528NA

PATIENT
  Age: 47 Year
  Sex: Female

DRUGS (1)
  1. MIRENA [Suspect]
     Indication: CONTRACEPTION
     Route: 015
     Dates: start: 20090918

REACTIONS (5)
  - ALOPECIA [None]
  - BREAST TENDERNESS [None]
  - COMPLICATION OF DEVICE INSERTION [None]
  - DEPRESSED MOOD [None]
  - VAGINAL DISCHARGE [None]
